FAERS Safety Report 20997406 (Version 1)
Quarter: 2022Q2

REPORT INFORMATION
  Report Type: Spontaneous
  Country: CN (occurrence: CN)
  Receive Date: 20220623
  Receipt Date: 20220623
  Transmission Date: 20220721
  Serious: Yes (Hospitalization, Other)
  Sender: FDA-Public Use
  Company Number: CN-ASTELLAS-2022US022130

PATIENT
  Age: 53 Year
  Sex: Male
  Weight: 63 kg

DRUGS (5)
  1. PROGRAF [Suspect]
     Active Substance: TACROLIMUS
     Indication: Prophylaxis against transplant rejection
     Route: 048
     Dates: start: 20220525, end: 20220531
  2. PROGRAF [Suspect]
     Active Substance: TACROLIMUS
     Dosage: UNK UNK, UNKNOWN FREQ.
     Route: 048
     Dates: start: 202206
  3. PREDNISONE ACETATE [Suspect]
     Active Substance: PREDNISONE ACETATE
     Indication: Prophylaxis against transplant rejection
     Route: 048
     Dates: start: 20220525, end: 20220609
  4. MYCOPHENOLATE SODIUM [Suspect]
     Active Substance: MYCOPHENOLATE SODIUM
     Indication: Prophylaxis against transplant rejection
     Dosage: 0.36 G, EVERY 12 HOURS
     Route: 048
     Dates: start: 20220525, end: 20220609
  5. WU ZHI [Concomitant]
     Indication: Product used for unknown indication
     Route: 065

REACTIONS (7)
  - T-lymphocyte count decreased [Unknown]
  - CD4 lymphocytes decreased [Unknown]
  - Acute kidney injury [Recovering/Resolving]
  - Diarrhoea [Recovered/Resolved]
  - Blood creatinine increased [Recovering/Resolving]
  - Complications of transplanted kidney [Recovered/Resolved]
  - Immunosuppressant drug level increased [Recovering/Resolving]

NARRATIVE: CASE EVENT DATE: 20220531
